FAERS Safety Report 4304779-9 (Version None)
Quarter: 2004Q1

REPORT INFORMATION
  Report Type: 
  Country: None (occurrence: None)
  Receive Date: 20040226
  Receipt Date: 20031208
  Transmission Date: 20041129
  Serious: No
  Sender: FDA-Public Use
  Company Number: US-GLAXOSMITHKLINE-A0442360A

PATIENT
  Age: 49 Year
  Sex: Female

DRUGS (3)
  1. WELLBUTRIN [Suspect]
     Indication: DEPRESSION
     Dosage: 300MG PER DAY
     Route: 048
     Dates: start: 20031020
  2. WELLBUTRIN [Suspect]
     Dosage: 150MG PER DAY
     Route: 048
  3. HORMONE REPLACEMENT THERAPY [Concomitant]

REACTIONS (3)
  - AGITATION [None]
  - ANXIETY [None]
  - DRUG INEFFECTIVE [None]
